FAERS Safety Report 10786450 (Version 1)
Quarter: 2015Q1

REPORT INFORMATION
  Report Type: Spontaneous
  Country: US (occurrence: None)
  Receive Date: 20150210
  Receipt Date: 20150210
  Transmission Date: 20150721
  Serious: Yes (Disabling)
  Sender: FDA-Public Use
  Company Number: None

PATIENT
  Age: 70 Year
  Sex: Male
  Weight: 76.2 kg

DRUGS (1)
  1. NOVOLIN N [Suspect]
     Active Substance: INSULIN HUMAN
     Indication: TYPE 2 DIABETES MELLITUS
     Dosage: 50 UNITS TWICE DAILY INTO THE MUSCLE
     Route: 030
     Dates: start: 20140923, end: 20150204

REACTIONS (3)
  - Insomnia [None]
  - Drug effect decreased [None]
  - Pruritus generalised [None]

NARRATIVE: CASE EVENT DATE: 20141112
